FAERS Safety Report 6934604-9 (Version None)
Quarter: 2010Q3

REPORT INFORMATION
  Report Type: 
  Country: None (occurrence: None)
  Receive Date: 20100820
  Receipt Date: 20100811
  Transmission Date: 20110219
  Serious: Yes (Life-Threatening, Hospitalization)
  Sender: FDA-Public Use
  Company Number: ZA-JNJFOC-20100505228

PATIENT
  Sex: Female
  Weight: 72 kg

DRUGS (1)
  1. REVELLEX [Suspect]
     Indication: COLITIS ULCERATIVE
     Route: 042

REACTIONS (2)
  - COLITIS ULCERATIVE [None]
  - INTESTINAL HAEMORRHAGE [None]
